FAERS Safety Report 13806298 (Version 2)
Quarter: 2018Q1

REPORT INFORMATION
  Report Type: Report from Study
  Country: US (occurrence: US)
  Receive Date: 20170728
  Receipt Date: 20180119
  Transmission Date: 20180508
  Serious: No
  Sender: FDA-Public Use
  Company Number: US-AMGEN-USASL2017076127

PATIENT
  Sex: Female

DRUGS (2)
  1. REPATHA [Suspect]
     Active Substance: EVOLOCUMAB
     Indication: TYPE IIA HYPERLIPIDAEMIA
     Dosage: 140 MG, Q2WK
     Route: 065
  2. ASPIRIN. [Concomitant]
     Active Substance: ASPIRIN

REACTIONS (8)
  - Hypoacusis [Unknown]
  - Pain in extremity [Unknown]
  - Blood pressure increased [Recovered/Resolved]
  - Pruritus [Not Recovered/Not Resolved]
  - Unevaluable event [Unknown]
  - Contusion [Unknown]
  - Skin haemorrhage [Unknown]
  - Chest pain [Recovered/Resolved]
